FAERS Safety Report 5573721-5 (Version None)
Quarter: 2007Q4

REPORT INFORMATION
  Report Type: 
  Country: None (occurrence: None)
  Receive Date: 20071226
  Receipt Date: 20071220
  Transmission Date: 20080405
  Serious: Yes (Disabling)
  Sender: FDA-Public Use
  Company Number: DE-MERCK-0711DEU00271

PATIENT
  Age: 66 Year
  Sex: Female
  Weight: 79 kg

DRUGS (1)
  1. VYTORIN [Suspect]
     Indication: TYPE IIA HYPERLIPIDAEMIA
     Route: 048
     Dates: start: 20070301, end: 20070401

REACTIONS (4)
  - ABDOMINAL PAIN [None]
  - DIARRHOEA [None]
  - FLATULENCE [None]
  - FREQUENT BOWEL MOVEMENTS [None]
